FAERS Safety Report 14952868 (Version 1)
Quarter: 2018Q2

REPORT INFORMATION
  Report Type: Spontaneous
  Country: US (occurrence: US)
  Receive Date: 20180530
  Receipt Date: 20180530
  Transmission Date: 20180711
  Serious: No
  Sender: FDA-Public Use
  Company Number: US-BIODELIVERY SCIENCES INTERNATIONAL-2018BDSI0036

PATIENT
  Age: 67 Year
  Sex: Male
  Weight: 111.23 kg

DRUGS (5)
  1. BUPRENORPHINE. [Suspect]
     Active Substance: BUPRENORPHINE
     Indication: PAIN
     Route: 002
     Dates: start: 20171226, end: 20180119
  2. HYDROCHLOROTHIAZIDE. [Concomitant]
     Active Substance: HYDROCHLOROTHIAZIDE
     Indication: HYPERTENSION
     Route: 048
  3. METOPROLOL. [Concomitant]
     Active Substance: METOPROLOL
     Indication: HYPERTENSION
     Route: 048
  4. ATORVASTATIN CALCIUM. [Concomitant]
     Active Substance: ATORVASTATIN CALCIUM
     Indication: PRODUCT USED FOR UNKNOWN INDICATION
     Route: 048
  5. BUPRENORPHINE. [Suspect]
     Active Substance: BUPRENORPHINE
     Route: 002
     Dates: start: 20180120

REACTIONS (3)
  - Drug ineffective [Recovered/Resolved]
  - Product adhesion issue [Unknown]
  - Oral administration complication [Unknown]

NARRATIVE: CASE EVENT DATE: 201712
